FAERS Safety Report 6311074-5 (Version None)
Quarter: 2009Q3

REPORT INFORMATION
  Report Type: 
  Country: None (occurrence: None)
  Receive Date: 20090817
  Receipt Date: 20090810
  Transmission Date: 20100115
  Serious: No
  Sender: FDA-Public Use
  Company Number: US-JNJFOC-20090803636

PATIENT
  Sex: Male
  Weight: 88.45 kg

DRUGS (4)
  1. FENTANYL TRANSDERMAL SYSTEM [Suspect]
     Indication: PAIN IN EXTREMITY
     Route: 062
  2. UNKNOWN MEDICATION [Concomitant]
     Indication: CARDIAC DISORDER
     Route: 048
  3. LYRICA [Concomitant]
     Indication: PAIN
     Route: 048
  4. METFORMIN HCL [Concomitant]
     Indication: BLOOD GLUCOSE ABNORMAL
     Route: 048

REACTIONS (2)
  - ABDOMINAL PAIN UPPER [None]
  - WRONG TECHNIQUE IN DRUG USAGE PROCESS [None]
